FAERS Safety Report 7389931-0 (Version None)
Quarter: 2011Q2

REPORT INFORMATION
  Report Type: 
  Country: None (occurrence: None)
  Receive Date: 20110401
  Receipt Date: 20110321
  Transmission Date: 20111010
  Serious: Yes (Death, Other)
  Sender: FDA-Public Use
  Company Number: US-BAYER-2011-025091

PATIENT
  Sex: Female

DRUGS (2)
  1. ASPIRIN [Suspect]
     Dosage: UNK
     Dates: start: 20000101
  2. PLAVIX [Suspect]
     Dosage: UNK
     Dates: start: 20000101

REACTIONS (3)
  - GASTRIC HAEMORRHAGE [None]
  - ULCER HAEMORRHAGE [None]
  - HAEMORRHAGE [None]
